FAERS Safety Report 11377142 (Version 1)
Quarter: 2015Q3

REPORT INFORMATION
  Report Type: Spontaneous
  Country: US (occurrence: US)
  Receive Date: 20150813
  Receipt Date: 20150813
  Transmission Date: 20151125
  Serious: No
  Sender: FDA-Public Use
  Company Number: US-GALDERMA-US14002907

PATIENT
  Age: 76 Year
  Sex: Female

DRUGS (3)
  1. CETAPHIL DAILY FACIAL CLEANSER [Concomitant]
     Active Substance: COSMETICS
     Indication: THERAPEUTIC SKIN CARE TOPICAL
     Route: 061
     Dates: start: 201405
  2. METROGEL [Suspect]
     Active Substance: METRONIDAZOLE
     Dosage: 1%
     Route: 061
  3. METROGEL [Suspect]
     Active Substance: METRONIDAZOLE
     Indication: ROSACEA
     Dosage: 1%
     Route: 061

REACTIONS (2)
  - Condition aggravated [Recovered/Resolved]
  - Dry skin [Recovering/Resolving]
